FAERS Safety Report 18140166 (Version 4)
Quarter: 2020Q4

REPORT INFORMATION
  Report Type: Report from Study
  Country: US (occurrence: US)
  Receive Date: 20200812
  Receipt Date: 20201030
  Transmission Date: 20210113
  Serious: Yes (Other)
  Sender: FDA-Public Use
  Company Number: US-BAYER-2020-145191

PATIENT
  Age: 61 Year
  Sex: Female
  Weight: 82.54 kg

DRUGS (5)
  1. ORENITRAM [Concomitant]
     Active Substance: TREPROSTINIL
     Indication: PULMONARY ARTERIAL HYPERTENSION
     Dosage: 1.0 MG
     Dates: start: 2020
  2. ADEMPAS [Suspect]
     Active Substance: RIOCIGUAT
     Indication: PULMONARY ARTERIAL HYPERTENSION
     Dosage: }0.5 MG
  3. ORENITRAM [Concomitant]
     Active Substance: TREPROSTINIL
     Indication: PULMONARY ARTERIAL HYPERTENSION
     Dosage: UNK
     Route: 048
     Dates: start: 20200420
  4. ADEMPAS [Suspect]
     Active Substance: RIOCIGUAT
     Indication: PULMONARY ARTERIAL HYPERTENSION
     Dosage: 0.5 MG, TID
  5. ADEMPAS [Suspect]
     Active Substance: RIOCIGUAT
     Indication: PULMONARY ARTERIAL HYPERTENSION
     Dosage: 0.5 MG, TID
     Route: 048
     Dates: start: 20200202

REACTIONS (15)
  - Acute kidney injury [Recovered/Resolved]
  - Back pain [Recovered/Resolved]
  - Ear infection [Recovered/Resolved]
  - Dehydration [Recovered/Resolved]
  - Muscle spasms [Recovered/Resolved]
  - Otorrhoea [Recovered/Resolved]
  - Multiple allergies [Recovered/Resolved]
  - Vomiting [Recovered/Resolved]
  - Diarrhoea [Recovered/Resolved]
  - Ear pain [Recovered/Resolved]
  - Dizziness [Recovered/Resolved]
  - Feeling abnormal [Recovered/Resolved]
  - Malaise [Recovered/Resolved]
  - Muscle twitching [Recovered/Resolved]
  - Disturbance in attention [Recovered/Resolved]

NARRATIVE: CASE EVENT DATE: 2020
